FAERS Safety Report 5050771-9 (Version None)
Quarter: 2006Q3

REPORT INFORMATION
  Report Type: 
  Country: None (occurrence: None)
  Receive Date: 20060706
  Receipt Date: 20060630
  Transmission Date: 20061208
  Serious: Yes (Life-Threatening, Hospitalization)
  Sender: FDA-Public Use
  Company Number: 2006081979

PATIENT
  Age: 89 Year
  Sex: Female

DRUGS (23)
  1. NORVASC [Suspect]
  2. ALDACTONE [Suspect]
  3. PREDNISONE TAB [Suspect]
  4. PRO-BANTHINE (PROPANTHELINE BROMIDE) [Concomitant]
  5. ULTRAM [Suspect]
     Dosage: ORAL
     Route: 048
  6. ACETAMINOPHEN [Suspect]
  7. PEPCID [Suspect]
  8. REMERON [Suspect]
     Indication: DEPRESSION
     Dosage: 15 MG (15 MG, 1 IN 1 D)
  9. EFFEXOR XR [Suspect]
     Indication: DEPRESSION
     Dosage: 225 MG (225 MG, 1 IN 1 D)
  10. ADVAIR DISKUS 100/50 [Suspect]
  11. DOCUSATE SODIUM (DOCUSATE SODIUM) [Suspect]
  12. ASPIRIN [Suspect]
  13. LOVENOX [Suspect]
  14. ANCEF [Suspect]
  15. TRAZODONE HCL [Suspect]
  16. LASIX [Suspect]
  17. KEFLEX [Suspect]
  18. SLO-MAG (MAGNESIUM CHLORIDE ANHYDROUS) [Suspect]
  19. COREG [Suspect]
  20. BUCINDOLOL HYDROCHLORIDE (BUCINDOLOL HYDROCHLORIDE) [Suspect]
  21. COZAR (LOSARTAN POTASSIUM) [Suspect]
  22. DARVOCET-N 100 [Suspect]
  23. DUONEB [Suspect]

REACTIONS (5)
  - BLOOD CREATINE DECREASED [None]
  - HIP FRACTURE [None]
  - HYPONATRAEMIA [None]
  - POST PROCEDURAL COMPLICATION [None]
  - POSTOPERATIVE INFECTION [None]
